FAERS Safety Report 7747648-4 (Version None)
Quarter: 2011Q3

REPORT INFORMATION
  Report Type: 
  Country: None (occurrence: None)
  Receive Date: 20110913
  Receipt Date: 20110906
  Transmission Date: 20111222
  Serious: Yes (Hospitalization)
  Sender: FDA-Public Use
  Company Number: US-US-EMD SERONO, INC.-7079339

PATIENT
  Sex: Female

DRUGS (6)
  1. SOMA [Concomitant]
  2. VICODIN [Concomitant]
  3. ASPIRIN [Concomitant]
  4. NEURONTIN [Concomitant]
  5. REBIF [Suspect]
     Indication: MULTIPLE SCLEROSIS
     Route: 058
     Dates: start: 20110210
  6. INSULIN [Concomitant]

REACTIONS (3)
  - DIARRHOEA [None]
  - INFLUENZA LIKE ILLNESS [None]
  - VOMITING [None]
